FAERS Safety Report 10146875 (Version 1)
Quarter: 2014Q2

REPORT INFORMATION
  Report Type: Spontaneous
  Country: DE (occurrence: DE)
  Receive Date: 20140501
  Receipt Date: 20140501
  Transmission Date: 20141212
  Serious: Yes (Other)
  Sender: FDA-Public Use
  Company Number: DE-TEVA-478986USA

PATIENT
  Age: 70 Year
  Sex: Male

DRUGS (2)
  1. LEVACT [Suspect]
     Indication: PLASMACYTOMA
     Route: 042
     Dates: start: 20140404
  2. LEVACT [Suspect]
     Route: 042
     Dates: start: 20140405

REACTIONS (1)
  - Haemoptysis [Recovered/Resolved]
